FAERS Safety Report 8082377 (Version 2)
Quarter: 2013Q1

REPORT INFORMATION
  Report Type: Spontaneous
  Country: US (occurrence: US)
  Receive Date: 20110809
  Receipt Date: 20130222
  Transmission Date: 20140127
  Serious: Yes (Hospitalization)
  Sender: FDA-Public Use
  Company Number: US-GLAXOSMITHKLINE-A0903530A

PATIENT
  Age: 64 Year
  Sex: Female
  Weight: 95.7 kg

DRUGS (1)
  1. AVANDIA [Suspect]
     Indication: DIABETES MELLITUS
     Dosage: 8MG PER DAY
     Route: 048
     Dates: start: 20080703, end: 20090413

REACTIONS (3)
  - Atrial fibrillation [Not Recovered/Not Resolved]
  - Heart valve incompetence [Unknown]
  - Cardiac failure congestive [Unknown]
